FAERS Safety Report 14544151 (Version 1)
Quarter: 2018Q1

REPORT INFORMATION
  Report Type: Report from Study
  Country: US (occurrence: US)
  Receive Date: 20180216
  Receipt Date: 20180216
  Transmission Date: 20180509
  Serious: Yes (Other)
  Sender: FDA-Public Use
  Company Number: PHEH2018US005502

PATIENT
  Sex: Male

DRUGS (1)
  1. COSENTYX [Suspect]
     Active Substance: SECUKINUMAB
     Indication: PSORIASIS
     Dosage: 300 OT, Q4W
     Route: 065
     Dates: start: 20151123, end: 20161126

REACTIONS (2)
  - Inappropriate schedule of drug administration [Unknown]
  - Tuberculosis [Unknown]

NARRATIVE: CASE EVENT DATE: 20151123
